FAERS Safety Report 8369833-3 (Version None)
Quarter: 2012Q1

REPORT INFORMATION
  Report Type: 
  Country: None (occurrence: None)
  Receive Date: 20120323
  Receipt Date: 20110118
  Transmission Date: 20120608
  Serious: Yes (Other)
  Sender: FDA-Public Use
  Company Number: 163-21880-11012136

PATIENT
  Age: 70 Year

DRUGS (1)
  1. REVLIMID [Suspect]
     Indication: MULTIPLE MYELOMA
     Dosage: 15 MG, 1 IN 1 D, PO 10 MG, DAILY AS DIRECTED, PO
     Route: 048
     Dates: start: 20101101

REACTIONS (5)
  - DEHYDRATION [None]
  - DECREASED APPETITE [None]
  - ABDOMINAL PAIN [None]
  - DIZZINESS [None]
  - SYNCOPE [None]
